FAERS Safety Report 16086547 (Version 2)
Quarter: 2019Q2

REPORT INFORMATION
  Report Type: Spontaneous
  Country: JP (occurrence: JP)
  Receive Date: 20190318
  Receipt Date: 20190424
  Transmission Date: 20190711
  Serious: Yes (Other)
  Sender: FDA-Public Use
  Company Number: JP-009507513-1903JPN000986J

PATIENT
  Age: 45 Year
  Sex: Male

DRUGS (3)
  1. PROPECIA [Suspect]
     Active Substance: FINASTERIDE
     Dosage: 1 MILLIGRAM, Q3D
     Route: 048
     Dates: start: 201802, end: 201902
  2. PROPECIA [Suspect]
     Active Substance: FINASTERIDE
     Indication: ANDROGENETIC ALOPECIA
     Dosage: 1 MILLIGRAM, QD
     Route: 048
     Dates: start: 201510
  3. PROPECIA [Suspect]
     Active Substance: FINASTERIDE
     Dosage: 1 MILLIGRAM, QOD
     Route: 048
     Dates: start: 201711

REACTIONS (1)
  - Osteonecrosis [Unknown]

NARRATIVE: CASE EVENT DATE: 201810
